FAERS Safety Report 7166820-8 (Version None)
Quarter: 2010Q4

REPORT INFORMATION
  Report Type: 
  Country: None (occurrence: None)
  Receive Date: 20101213
  Receipt Date: 20101213
  Transmission Date: 20110411
  Serious: No
  Sender: FDA-Public Use
  Company Number: None

PATIENT
  Age: 29 Year
  Sex: Female
  Weight: 83.9154 kg

DRUGS (1)
  1. RESTASIS [Suspect]
     Indication: DRY EYE
     Dosage: ONE FILE PER DAY ONE TIME PER DAY TRANSDERMAL
     Route: 062
     Dates: start: 20081201, end: 20081225

REACTIONS (1)
  - SKIN DISCOLOURATION [None]
